FAERS Safety Report 10161860 (Version 1)
Quarter: 2014Q2

REPORT INFORMATION
  Report Type: Spontaneous
  Country: US (occurrence: None)
  Receive Date: 20140508
  Receipt Date: 20140508
  Transmission Date: 20141212
  Serious: No
  Sender: FDA-Public Use
  Company Number: None

PATIENT
  Age: 74 Year
  Sex: Male

DRUGS (5)
  1. IMBRUVICA [Suspect]
     Indication: PRODUCT USED FOR UNKNOWN INDICATION
     Dosage: 140 MG 3 CAPS DAILY ORAL
     Route: 048
     Dates: start: 20140412
  2. ATORVASTATIN [Concomitant]
  3. METOPROLOL SUCC [Concomitant]
  4. MULTIVITAMINS [Concomitant]
  5. ASPIRIN [Concomitant]

REACTIONS (1)
  - Dizziness [None]
